FAERS Safety Report 7756002-0 (Version None)
Quarter: 2011Q3

REPORT INFORMATION
  Report Type: 
  Country: None (occurrence: None)
  Receive Date: 20110916
  Receipt Date: 20110908
  Transmission Date: 20111222
  Serious: Yes (Hospitalization)
  Sender: FDA-Public Use
  Company Number: FR-PFIZER INC-2011204214

PATIENT
  Age: 45 Year
  Sex: Male

DRUGS (5)
  1. TRIMETHOPRIM [Suspect]
     Indication: THYROID DERMATOPATHY
     Dosage: UNK
     Dates: start: 20110411
  2. LANSOPRAZOLE [Suspect]
     Dosage: 15 MG, 1X/DAY
     Route: 048
     Dates: start: 20110511, end: 20110515
  3. ZOLPIDEM [Suspect]
     Dosage: 10 MG, UNK
     Route: 048
     Dates: start: 20110511, end: 20110528
  4. SOLU-MEDROL [Suspect]
     Indication: BASEDOW'S DISEASE
     Dosage: 500 MG, 1X/DAY
     Route: 040
     Dates: start: 20110510, end: 20110601
  5. LEVOTHYROXINE [Concomitant]

REACTIONS (1)
  - CYTOLYTIC HEPATITIS [None]
